FAERS Safety Report 21209507 (Version 1)
Quarter: 2022Q3

REPORT INFORMATION
  Report Type: Spontaneous
  Country: FR (occurrence: FR)
  Receive Date: 20220813
  Receipt Date: 20220813
  Transmission Date: 20221026
  Serious: Yes (Hospitalization)
  Sender: FDA-Public Use
  Company Number: None

PATIENT
  Age: 75 Year
  Sex: Male

DRUGS (2)
  1. VALSARTAN [Suspect]
     Active Substance: VALSARTAN
     Indication: Hypertension
     Dosage: LONG COURSE, FREQUENCY TIME : 1 DAY, UNIT DOSE: 160 MG, THERAPY START DATE: NASK
     Dates: end: 202201
  2. PRADAXA [Suspect]
     Active Substance: DABIGATRAN ETEXILATE MESYLATE
     Indication: Atrial fibrillation
     Dosage: 300 MILLIGRAM DAILY; 150MGX2/D, FREQUENCY TIME : 1 DAY, UNIT DOSE: 300 MG, THERAPY END DATE: NASK
     Dates: start: 202104

REACTIONS (2)
  - Acute kidney injury [Recovered/Resolved]
  - Lower gastrointestinal haemorrhage [Recovered/Resolved]

NARRATIVE: CASE EVENT DATE: 20211230
